FAERS Safety Report 10068648 (Version 2)
Quarter: 2014Q2

REPORT INFORMATION
  Report Type: Spontaneous
  Country: JP (occurrence: JP)
  Receive Date: 20140409
  Receipt Date: 20140416
  Transmission Date: 20141212
  Serious: Yes (Hospitalization)
  Sender: FDA-Public Use
  Company Number: JP-GLAXOSMITHKLINE-B0984003A

PATIENT
  Age: 7 Year
  Sex: Female
  Weight: 24.4 kg

DRUGS (5)
  1. RELENZA [Suspect]
     Indication: INFLUENZA
     Dosage: 10MG TWICE PER DAY
     Route: 055
     Dates: start: 20140126, end: 20140131
  2. MEDICON [Suspect]
     Indication: PRODUCT USED FOR UNKNOWN INDICATION
     Dosage: .1G TWICE PER DAY
     Route: 048
     Dates: start: 20140126, end: 20140202
  3. PERIACTIN [Suspect]
     Indication: PRODUCT USED FOR UNKNOWN INDICATION
     Dosage: .2G TWICE PER DAY
     Route: 048
     Dates: start: 20140126, end: 20140202
  4. MEPTIN [Suspect]
     Indication: PRODUCT USED FOR UNKNOWN INDICATION
     Dosage: .5G TWICE PER DAY
     Route: 048
     Dates: start: 20140126, end: 20140202
  5. PULSMARIN A [Suspect]
     Indication: PRODUCT USED FOR UNKNOWN INDICATION
     Dosage: .8G TWICE PER DAY
     Route: 048
     Dates: start: 20140126, end: 20140202

REACTIONS (4)
  - Toxic epidermal necrolysis [Recovering/Resolving]
  - Generalised erythema [Unknown]
  - Blister [Unknown]
  - Conjunctival hyperaemia [Unknown]
